FAERS Safety Report 5578062-8 (Version None)
Quarter: 2007Q4

REPORT INFORMATION
  Report Type: 
  Country: None (occurrence: None)
  Receive Date: 20071231
  Receipt Date: 20071219
  Transmission Date: 20080405
  Serious: Yes (Life-Threatening)
  Sender: FDA-Public Use
  Company Number: JP-ROCHE-533603

PATIENT
  Age: 61 Year
  Sex: Female
  Weight: 42 kg

DRUGS (11)
  1. TAMIFLU [Suspect]
     Route: 048
     Dates: start: 20070402, end: 20070402
  2. CARVACRON [Concomitant]
     Route: 048
     Dates: start: 20050101
  3. NU-LOTAN [Concomitant]
     Route: 048
     Dates: start: 20050101
  4. NORVASC [Concomitant]
     Route: 048
     Dates: start: 20050101
  5. BETAHISTINE MESILATE [Concomitant]
     Route: 048
     Dates: start: 20050101
  6. ALPRAZOLAM [Concomitant]
     Dosage: DRUG REPORTED AS MEDEPOLIN
     Route: 048
     Dates: start: 20050101
  7. MAGNESIUM OXIDE [Concomitant]
     Route: 048
     Dates: start: 20050101
  8. GOKUMISIN [Concomitant]
     Route: 048
     Dates: start: 20050101
  9. GASUISAN [Concomitant]
     Route: 048
     Dates: start: 20050101
  10. EPL (POLYENEPHOSPHATIDYL CHOLINE) [Concomitant]
     Route: 048
     Dates: start: 20050101
  11. 1 CONCOMITANT DRUG [Concomitant]
     Dosage: DRUG: OHNES
     Route: 048
     Dates: start: 20050101

REACTIONS (1)
  - ABNORMAL BEHAVIOUR [None]
